FAERS Safety Report 7392381-4 (Version None)
Quarter: 2011Q2

REPORT INFORMATION
  Report Type: 
  Country: None (occurrence: None)
  Receive Date: 20110404
  Receipt Date: 20110322
  Transmission Date: 20111010
  Serious: Yes (Hospitalization)
  Sender: FDA-Public Use
  Company Number: US-ELI_LILLY_AND_COMPANY-US201102007230

PATIENT
  Sex: Female
  Weight: 61.224 kg

DRUGS (11)
  1. FORTEO [Suspect]
     Indication: OSTEOPOROSIS
     Dosage: 20 UG, DAILY (1/D)
     Route: 058
     Dates: start: 20101019
  2. NEURONTIN [Concomitant]
     Dosage: 300 MG, 3/D
  3. LOVAZA [Concomitant]
  4. ZOCOR [Concomitant]
     Dosage: 30 MG, UNK
  5. VITAMIN D [Concomitant]
  6. PROZAC [Concomitant]
     Dosage: 40 MG, UNK
  7. KLONOPIN [Concomitant]
     Dosage: 1 MG, EACH EVENING
  8. VITAMIN A [Concomitant]
  9. VITAMIN B [Concomitant]
  10. CENTRUM SILVER [Concomitant]
  11. PREMARIN [Concomitant]
     Dosage: 0.625 MG, DAILY (1/D)

REACTIONS (1)
  - BRONCHITIS [None]
